FAERS Safety Report 16340326 (Version 1)
Quarter: 2019Q2

REPORT INFORMATION
  Report Type: Spontaneous
  Country: US (occurrence: US)
  Receive Date: 20190522
  Receipt Date: 20190522
  Transmission Date: 20190711
  Serious: No
  Sender: FDA-Public Use
  Company Number: US-BIOGEN-2019BI00737915

PATIENT
  Age: 54 Year
  Sex: Male

DRUGS (1)
  1. TYSABRI [Suspect]
     Active Substance: NATALIZUMAB
     Indication: MULTIPLE SCLEROSIS
     Route: 065
     Dates: start: 20061130

REACTIONS (4)
  - Prescribed underdose [Unknown]
  - Cerebral disorder [Unknown]
  - Intervertebral disc protrusion [Unknown]
  - CSF test abnormal [Unknown]

NARRATIVE: CASE EVENT DATE: 20190101
